FAERS Safety Report 4847346-0 (Version None)
Quarter: 2005Q4

REPORT INFORMATION
  Report Type: 
  Country: None (occurrence: None)
  Receive Date: 20051207
  Receipt Date: 20051130
  Transmission Date: 20060501
  Serious: Yes (Hospitalization)
  Sender: FDA-Public Use
  Company Number: AU-ROCHE-426695

PATIENT
  Age: 17 Year
  Sex: Female

DRUGS (11)
  1. DIAZEPAM [Suspect]
     Route: 048
  2. MIDAZOLAM HYDROCHLORIDE [Interacting]
     Route: 030
  3. SEROQUEL [Interacting]
     Route: 065
  4. DROPERIDOL [Interacting]
     Route: 030
  5. ABILIFY [Interacting]
     Route: 048
     Dates: start: 20031126, end: 20031205
  6. LAMICTAL [Interacting]
     Indication: DRUG USE FOR UNKNOWN INDICATION
     Route: 048
  7. EPILIM [Interacting]
     Indication: DRUG USE FOR UNKNOWN INDICATION
     Route: 048
  8. LEVLEN 28 [Concomitant]
  9. FERRO-GRADUMET [Concomitant]
  10. NICABATE [Concomitant]
  11. MYLANTA [Concomitant]

REACTIONS (2)
  - DEPRESSED LEVEL OF CONSCIOUSNESS [None]
  - DRUG INTERACTION [None]
